FAERS Safety Report 8937187 (Version 1)
Quarter: 2012Q4

REPORT INFORMATION
  Report Type: Spontaneous
  Country: US (occurrence: None)
  Receive Date: 20121128
  Receipt Date: 20121128
  Transmission Date: 20130627
  Serious: Yes (Hospitalization)
  Sender: FDA-Public Use
  Company Number: None

PATIENT
  Age: 62 Year
  Sex: Female
  Weight: 143.3 kg

DRUGS (21)
  1. MS CONTIN [Suspect]
     Indication: CHRONIC PAIN
     Dosage: chronic
     Route: 048
  2. MS CONTIN [Suspect]
     Indication: LUMBAR DISC HERNIATION
     Dosage: chronic
     Route: 048
  3. MS CONTIN [Suspect]
     Indication: SPINAL LUMBAR DISORDER
     Dosage: chronic
     Route: 048
  4. PERCOCET [Suspect]
     Dosage: chronic
5/325 x 2 Q4H prn
     Route: 048
  5. KCL [Concomitant]
  6. PRILOSEC [Concomitant]
  7. SINGULAIR [Concomitant]
  8. COLACE [Concomitant]
  9. CARDIZEM CD [Concomitant]
  10. DEMADEX [Concomitant]
  11. SENOKOT S [Concomitant]
  12. NEURONTIN [Concomitant]
  13. ENTOCORT [Concomitant]
  14. CYMBALTA [Concomitant]
  15. MIRALAX [Concomitant]
  16. CELEBREX  WELLBURTIN [Concomitant]
  17. HYDROCORTISONE [Concomitant]
  18. ZOFRAN [Concomitant]
  19. OXYOODONE [Concomitant]
  20. NYSTATIN [Concomitant]
  21. MEROPENEM [Concomitant]

REACTIONS (4)
  - Unresponsive to stimuli [None]
  - Drug dependence [None]
  - Factitious disorder [None]
  - Speech disorder [None]
